FAERS Safety Report 5142790-9 (Version None)
Quarter: 2006Q4

REPORT INFORMATION
  Report Type: 
  Country: None (occurrence: None)
  Receive Date: 20061102
  Receipt Date: 20051026
  Transmission Date: 20070319
  Serious: Yes (Hospitalization)
  Sender: FDA-Public Use
  Company Number: HQWYE297528OCT05

PATIENT
  Sex: Female
  Weight: 43 kg

DRUGS (11)
  1. ENBREL [Suspect]
     Indication: RHEUMATOID ARTHRITIS
     Route: 058
     Dates: start: 20050916, end: 20051026
  2. MIZORIBINE [Concomitant]
     Route: 048
  3. NEORAL [Concomitant]
     Route: 048
  4. FAMOTIDINE [Concomitant]
     Dosage: UNKNOWN
     Route: 048
  5. KETOPROFEN [Concomitant]
  6. CYANOCOBALAMIN [Concomitant]
     Dosage: UNKNOWN
     Route: 048
  7. PREDNISOLONE [Concomitant]
     Indication: RHEUMATOID ARTHRITIS
     Dosage: UNKNOWN
     Route: 048
  8. ISCOTIN [Concomitant]
     Dosage: UNKNOWN
     Route: 048
  9. HALCION [Concomitant]
     Dosage: UNKNOWN
     Route: 048
  10. SULFASALAZINE [Concomitant]
     Route: 048
  11. SELBEX [Concomitant]
     Dosage: UNKNOWN
     Route: 048

REACTIONS (1)
  - PALPITATIONS [None]
